FAERS Safety Report 8105521-6 (Version None)
Quarter: 2012Q1

REPORT INFORMATION
  Report Type: 
  Country: None (occurrence: None)
  Receive Date: 20120201
  Receipt Date: 20120126
  Transmission Date: 20120608
  Serious: Yes (Other)
  Sender: FDA-Public Use
  Company Number: US-PFIZER INC-2012022220

PATIENT
  Sex: Male

DRUGS (1)
  1. DILANTIN [Suspect]
     Dosage: UNK, 1X/DAY
     Route: 048

REACTIONS (1)
  - CONVULSION [None]
